FAERS Safety Report 9286039 (Version 3)
Quarter: 2013Q3

REPORT INFORMATION
  Report Type: Spontaneous
  Country: US (occurrence: US)
  Receive Date: 20130513
  Receipt Date: 20130724
  Transmission Date: 20140515
  Serious: No
  Sender: FDA-Public Use
  Company Number: US-009507513-1305USA006530

PATIENT
  Age: 61 Year
  Sex: Male

DRUGS (8)
  1. VICTRELIS [Suspect]
     Indication: HEPATITIS C
     Dosage: 800 MG, TID,Q 7-9 HOURS WITH FOOD
     Route: 048
     Dates: start: 20130422
  2. REBETOL [Suspect]
     Indication: HEPATITIS C
     Dosage: UNK
     Dates: start: 20011102, end: 20020503
  3. REBETOL [Suspect]
     Dosage: UNK
     Dates: start: 20081003, end: 20090403
  4. REBETOL [Suspect]
     Dosage: UNK
     Dates: start: 20130324
  5. PEGASYS [Suspect]
     Indication: HEPATITIS C
     Dosage: UNK
     Dates: start: 20011102, end: 20020503
  6. PEGASYS [Suspect]
     Dosage: UNK
     Dates: start: 20081003, end: 20090403
  7. PEGASYS [Suspect]
     Dosage: UNK
     Dates: start: 20130324
  8. TRAZODONE HYDROCHLORIDE [Concomitant]

REACTIONS (9)
  - Oral pain [Unknown]
  - Mouth ulceration [Unknown]
  - Drug ineffective [Unknown]
  - Therapeutic response decreased [Unknown]
  - Drug ineffective [Unknown]
  - Therapeutic response decreased [Unknown]
  - Stomatitis [Recovered/Resolved]
  - Depression [Recovered/Resolved]
  - Dyspnoea [Recovered/Resolved]
